FAERS Safety Report 11168890 (Version 2)
Quarter: 2015Q2

REPORT INFORMATION
  Report Type: Spontaneous
  Country: NL (occurrence: NL)
  Receive Date: 20150605
  Receipt Date: 20150616
  Transmission Date: 20150821
  Serious: Yes (Hospitalization)
  Sender: FDA-Public Use
  Company Number: NL-APOTEX-2015AP009788

PATIENT
  Age: 36 Year
  Sex: Female

DRUGS (2)
  1. GABAPENTIN. [Suspect]
     Active Substance: GABAPENTIN
     Indication: NEURALGIA
     Dosage: 1800 MG, DAILY
     Route: 065
  2. PYRIDOSTIGMINE [Concomitant]
     Active Substance: PYRIDOSTIGMINE
     Indication: COMPLEX REGIONAL PAIN SYNDROME
     Dosage: 180 MG, DAILY
     Route: 065

REACTIONS (1)
  - Hypoglycaemia [Recovered/Resolved]
